FAERS Safety Report 15182805 (Version 1)
Quarter: 2018Q3

REPORT INFORMATION
  Report Type: Spontaneous
  Country: CA (occurrence: CA)
  Receive Date: 20180723
  Receipt Date: 20180723
  Transmission Date: 20181010
  Serious: Yes (Other)
  Sender: FDA-Public Use
  Company Number: CA-PFIZER INC-2017285151

PATIENT
  Age: 52 Year
  Sex: Female
  Weight: 103 kg

DRUGS (23)
  1. VENLAFAXINE [Concomitant]
     Active Substance: VENLAFAXINE HYDROCHLORIDE
     Indication: AFFECTIVE DISORDER
     Dosage: 75 MG, QUANTUM SATIS
  2. INNOHEP [Concomitant]
     Active Substance: TINZAPARIN SODIUM
     Dosage: 0.85 MG, QD (1X/DAY)
     Route: 058
  3. OXYNEO [Concomitant]
     Active Substance: OXYCODONE
     Indication: ANALGESIC THERAPY
     Dosage: 10 MG, 2X/DAY
     Route: 048
     Dates: start: 2014
  4. LEUPROLIDE /00726901/ [Concomitant]
     Active Substance: LEUPROLIDE
     Dosage: 22.5 MG, MONTHLY
     Route: 058
     Dates: start: 201505, end: 201711
  5. ZOPICLONE [Concomitant]
     Active Substance: ZOPICLONE
     Dosage: 7.5 MG DAILY AS NEEDED
     Route: 048
     Dates: start: 201606
  6. LEVOTHYROXINE /00068002/ [Concomitant]
     Active Substance: LEVOTHYROXINE
     Dosage: 0.5 MG, QD (1X/DAY)
  7. ADVIL (MEFENAMIC ACID) [Concomitant]
     Active Substance: MEFENAMIC ACID
     Dosage: UNK, PRN (AS NEEDED)
  8. TIZAPAM [Concomitant]
     Indication: PULMONARY EMBOLISM
     Dosage: 17000 IU, DAILY
     Route: 060
     Dates: start: 201410
  9. ZOPICLONE [Concomitant]
     Active Substance: ZOPICLONE
     Dosage: 0.5 DF, AS NEEDED
  10. OXYCODONE [Concomitant]
     Active Substance: OXYCODONE
     Indication: ANALGESIC THERAPY
     Dosage: 1 DF, B.I.D (2X/DAY)
  11. OXYCODONE [Concomitant]
     Active Substance: OXYCODONE
     Dosage: 5?10 MG DAILY AS NEEDED
     Route: 048
     Dates: start: 2014
  12. IBRANCE [Suspect]
     Active Substance: PALBOCICLIB
     Dosage: 100 MG, DAILY FOR 21 DAYS, OFF 7 DAYS
     Route: 048
     Dates: start: 201709, end: 20171219
  13. VITAMIN D /00107901/ [Concomitant]
     Active Substance: ERGOCALCIFEROL
     Dosage: UNK
  14. IBRANCE [Suspect]
     Active Substance: PALBOCICLIB
     Indication: BREAST CANCER METASTATIC
     Dosage: 125 MG, CYCLIC (1 TAB QD, FOR 21 DAYS AND 7 DAYS OFF)
     Route: 048
     Dates: start: 20170606
  15. TYLENOL [Concomitant]
     Active Substance: ACETAMINOPHEN
     Dosage: UNK, PRN (AS NEEDED)
  16. SYNTHROID [Concomitant]
     Active Substance: LEVOTHYROXINE SODIUM
     Indication: HYPOTHYROIDISM
     Dosage: 50 UG, QD (1X/DAY)
     Route: 048
     Dates: start: 201703
  17. DENOSUMAB [Concomitant]
     Active Substance: DENOSUMAB
     Indication: BONE DISORDER
     Dosage: 120 MG, CYCLIC (EVERY 4 WEEKS)
     Route: 060
     Dates: start: 201410
  18. IBRANCE [Suspect]
     Active Substance: PALBOCICLIB
     Dosage: 100 MG, CYCLIC (1X/DAY FOR 3 WEEKS (21 DAYS), ONE WEEK REST)
     Route: 048
     Dates: start: 20170704
  19. CALCIUM [Concomitant]
     Active Substance: CALCIUM
     Dosage: UNK, QD (1X/DAY)
  20. VENLAFAXINE [Concomitant]
     Active Substance: VENLAFAXINE HYDROCHLORIDE
     Indication: HOT FLUSH
     Dosage: 150 MG, DAILY
     Route: 048
     Dates: start: 201512
  21. ZOLADEX [Concomitant]
     Active Substance: GOSERELIN ACETATE
     Dosage: UNK, AS NEEDED
  22. LETROZOLE. [Concomitant]
     Active Substance: LETROZOLE
     Dosage: 2.5 MG, DAILY
     Route: 048
     Dates: start: 201506, end: 201806
  23. DENOSUMAB [Concomitant]
     Active Substance: DENOSUMAB
     Dosage: 120 MG, CYCLIC (EVERY 8 WEEKS)
     Route: 060

REACTIONS (10)
  - Fatigue [Unknown]
  - Nausea [Unknown]
  - White blood cell count decreased [Unknown]
  - Vomiting [Not Recovered/Not Resolved]
  - Asthenia [Unknown]
  - Drug dose omission [Unknown]
  - Epistaxis [Unknown]
  - Neoplasm progression [Unknown]
  - Headache [Unknown]
  - Weight decreased [Recovering/Resolving]

NARRATIVE: CASE EVENT DATE: 201708
